FAERS Safety Report 23775213 (Version 1)
Quarter: 2024Q2

REPORT INFORMATION
  Report Type: Spontaneous
  Country: US (occurrence: None)
  Receive Date: 20240423
  Receipt Date: 20240423
  Transmission Date: 20240716
  Serious: No
  Sender: FDA-Public Use
  Company Number: None

PATIENT
  Age: 89 Year
  Sex: Female
  Weight: 60.78 kg

DRUGS (17)
  1. DORZOLAMIDE [Suspect]
     Active Substance: DORZOLAMIDE
     Indication: Ocular discomfort
     Dosage: FREQUENCY : TWICE A DAY;?
     Dates: start: 20210910, end: 20240214
  2. EYLEA [Concomitant]
  3. METFORMIN [Concomitant]
  4. LOSARTAN [Concomitant]
  5. PAROXETINE [Concomitant]
     Active Substance: PAROXETINE
  6. LOSARTAN [Concomitant]
     Active Substance: LOSARTAN
  7. METFORMIN [Concomitant]
     Active Substance: METFORMIN HYDROCHLORIDE
  8. MONTELUKAST [Concomitant]
     Active Substance: MONTELUKAST SODIUM
  9. ROSUVASTATIN [Concomitant]
     Active Substance: ROSUVASTATIN
  10. DORZOLAMIDE [Concomitant]
     Active Substance: DORZOLAMIDE
  11. CENTURY SILVER WOMEN 50+ [Concomitant]
  12. CALTRATE [Concomitant]
     Active Substance: CALCIUM CARBONATE
  13. FISH OIL [Concomitant]
     Active Substance: FISH OIL
  14. MAGNESIUM [Concomitant]
     Active Substance: MAGNESIUM
  15. DIGESTIVE ADVANTAGE [Concomitant]
  16. QUNOL [Concomitant]
  17. CALCIUM [Concomitant]
     Active Substance: CALCIUM

REACTIONS (6)
  - Skin exfoliation [None]
  - Ear dryness [None]
  - Eye irritation [None]
  - Paranasal sinus hyposecretion [None]
  - Decreased appetite [None]
  - Fatigue [None]

NARRATIVE: CASE EVENT DATE: 20190101
